FAERS Safety Report 17010527 (Version 5)
Quarter: 2020Q2

REPORT INFORMATION
  Report Type: Report from Study
  Country: US (occurrence: US)
  Receive Date: 20191108
  Receipt Date: 20200415
  Transmission Date: 20200713
  Serious: Yes (Hospitalization, Other)
  Sender: FDA-Public Use
  Company Number: US-UCBSA-2019041627

PATIENT
  Age: 62 Year
  Sex: Female
  Weight: 68 kg

DRUGS (5)
  1. CERTOLIZUMAB PEGOL [Suspect]
     Active Substance: CERTOLIZUMAB PEGOL
     Dosage: 400 MILLIGRAM, EV 2 WEEKS(QOW)
     Dates: start: 20191003
  2. CIMZIA [Suspect]
     Active Substance: CERTOLIZUMAB PEGOL
     Indication: PSORIATIC ARTHROPATHY
     Dosage: 400 MILLIGRAM, EV 2 WEEKS(QOW)
     Dates: start: 2019
  3. HUMIRA [Suspect]
     Active Substance: ADALIMUMAB
     Indication: PSORIATIC ARTHROPATHY
     Dosage: 40 MILLIGRAM, EV 2 WEEKS(QOW)
     Route: 058
     Dates: start: 201911, end: 202001
  4. CERTOLIZUMAB PEGOL [Suspect]
     Active Substance: CERTOLIZUMAB PEGOL
     Indication: PSORIATIC ARTHROPATHY
     Dosage: 400 MILLIGRAM, EV 2 WEEKS(QOW)
     Dates: start: 20190926, end: 2019
  5. HUMIRA [Suspect]
     Active Substance: ADALIMUMAB
     Indication: PSORIASIS
     Dosage: 40 MILLIGRAM, EV 2 WEEKS(QOW)
     Route: 058
     Dates: start: 201903, end: 201909

REACTIONS (13)
  - Psoriatic arthropathy [Unknown]
  - Respiratory tract infection [Not Recovered/Not Resolved]
  - Abdominal pain upper [Recovered/Resolved]
  - Night sweats [Not Recovered/Not Resolved]
  - Oropharyngeal pain [Not Recovered/Not Resolved]
  - Depression [Not Recovered/Not Resolved]
  - Hepatic enzyme increased [Recovered/Resolved]
  - Enzyme abnormality [Unknown]
  - Needle issue [Unknown]
  - Appendix disorder [Recovered/Resolved]
  - Pain [Not Recovered/Not Resolved]
  - Back pain [Not Recovered/Not Resolved]
  - Arthralgia [Not Recovered/Not Resolved]

NARRATIVE: CASE EVENT DATE: 2019
